FAERS Safety Report 5322061-8 (Version None)
Quarter: 2007Q2

REPORT INFORMATION
  Report Type: 
  Country: None (occurrence: None)
  Receive Date: 20070511
  Receipt Date: 20070501
  Transmission Date: 20071010
  Serious: Yes (Death, Hospitalization)
  Sender: FDA-Public Use
  Company Number: US-JNJFOC-20060901000

PATIENT
  Age: 61 Year
  Sex: Female

DRUGS (7)
  1. TRAMADOL HCL [Suspect]
     Indication: DRUG USE FOR UNKNOWN INDICATION
  2. DIPHENHYDRAMINE HCL [Suspect]
     Indication: SUICIDE ATTEMPT
     Route: 048
  3. PROPRANOLOL [Suspect]
     Indication: SUICIDE ATTEMPT
     Route: 048
  4. ACETAMINOPHEN AND HYDROCODONE BITARTRATE [Suspect]
     Indication: SUICIDE ATTEMPT
     Route: 048
  5. ESCITALOPRAM OXALATE [Suspect]
     Indication: SUICIDE ATTEMPT
  6. NORTRIPTYLINE HCL [Suspect]
     Indication: SUICIDE ATTEMPT
  7. OXYCODONE HCL [Concomitant]

REACTIONS (5)
  - COMPLETED SUICIDE [None]
  - MULTI-ORGAN FAILURE [None]
  - MULTIPLE DRUG OVERDOSE INTENTIONAL [None]
  - PNEUMONIA ASPIRATION [None]
  - SEPSIS [None]
